FAERS Safety Report 5503471-2 (Version None)
Quarter: 2007Q4

REPORT INFORMATION
  Report Type: 
  Country: None (occurrence: None)
  Receive Date: 20071031
  Receipt Date: 20071023
  Transmission Date: 20080405
  Serious: Yes (Other)
  Sender: FDA-Public Use
  Company Number: US-PFIZER INC-2007089712

PATIENT
  Sex: Female
  Weight: 50 kg

DRUGS (4)
  1. AROMASIN [Suspect]
     Indication: BREAST CANCER
     Route: 048
  2. ZOLOFT [Interacting]
     Indication: DEPRESSION
  3. ATIVAN [Concomitant]
  4. WYGESIC [Concomitant]

REACTIONS (7)
  - ARTHRALGIA [None]
  - DEPRESSION [None]
  - DRUG INTERACTION [None]
  - HOT FLUSH [None]
  - INSOMNIA [None]
  - OSTEOPOROSIS [None]
  - TRIGGER FINGER [None]
